FAERS Safety Report 24377433 (Version 1)
Quarter: 2024Q3

REPORT INFORMATION
  Report Type: Spontaneous
  Country: CN (occurrence: CN)
  Receive Date: 20240930
  Receipt Date: 20240930
  Transmission Date: 20241017
  Serious: Yes (Other)
  Sender: ROCHE
  Company Number: CN-ROCHE-10000088487

PATIENT
  Age: 70 Year
  Sex: Female
  Weight: 58 kg

DRUGS (12)
  1. OBINUTUZUMAB [Suspect]
     Active Substance: OBINUTUZUMAB
     Indication: Follicular lymphoma
     Route: 065
     Dates: start: 20231028
  2. CYCLOPHOSPHAMIDE [Concomitant]
     Active Substance: CYCLOPHOSPHAMIDE
     Indication: Follicular lymphoma
     Dates: start: 20231028
  3. CYCLOPHOSPHAMIDE [Concomitant]
     Active Substance: CYCLOPHOSPHAMIDE
     Indication: Plasma cell myeloma
  4. DOXORUBICIN [Concomitant]
     Active Substance: DOXORUBICIN
     Indication: Follicular lymphoma
     Dates: start: 20231028
  5. VINDESINE [Concomitant]
     Active Substance: VINDESINE
     Indication: Follicular lymphoma
     Dates: start: 20231028
  6. DEXAMETHASONE [Concomitant]
     Active Substance: DEXAMETHASONE
     Indication: Follicular lymphoma
     Dates: start: 20231028
  7. DEXAMETHASONE [Concomitant]
     Active Substance: DEXAMETHASONE
     Indication: Plasma cell myeloma
  8. BENDAMUSTINE [Concomitant]
     Active Substance: BENDAMUSTINE
     Indication: Follicular lymphoma
     Dates: start: 20231028
  9. BORTEZOMIB [Concomitant]
     Active Substance: BORTEZOMIB
     Indication: Follicular lymphoma
  10. BORTEZOMIB [Concomitant]
     Active Substance: BORTEZOMIB
     Indication: Plasma cell myeloma
  11. LENALIDOMIDE [Concomitant]
     Active Substance: LENALIDOMIDE
     Indication: Follicular lymphoma
  12. LENALIDOMIDE [Concomitant]
     Active Substance: LENALIDOMIDE
     Indication: Plasma cell myeloma

REACTIONS (2)
  - Plasma cell myeloma [Unknown]
  - Drug ineffective [Unknown]
